FAERS Safety Report 5863158-3 (Version None)
Quarter: 2008Q3

REPORT INFORMATION
  Report Type: 
  Country: None (occurrence: None)
  Receive Date: 20080828
  Receipt Date: 20080819
  Transmission Date: 20090109
  Serious: Yes (Hospitalization)
  Sender: FDA-Public Use
  Company Number: FR-ABBOTT-08P-056-0471681-00

PATIENT
  Sex: Male

DRUGS (10)
  1. KALETRA [Suspect]
     Indication: HIV INFECTION
     Route: 048
     Dates: start: 20011101, end: 20050401
  2. KALETRA [Suspect]
     Indication: ACQUIRED IMMUNODEFICIENCY SYNDROME
  3. NORVIR [Suspect]
     Indication: DRUG USE FOR UNKNOWN INDICATION
     Dates: start: 20050401
  4. ABACAVIR [Suspect]
     Indication: HIV INFECTION
     Route: 048
     Dates: start: 20011101, end: 20060916
  5. ABACAVIR [Suspect]
     Indication: ACQUIRED IMMUNODEFICIENCY SYNDROME
  6. TENOFOVIR DISOPROXIL FUMARATE [Suspect]
     Indication: HIV INFECTION
     Route: 048
     Dates: start: 20011101, end: 20050401
  7. TENOFOVIR DISOPROXIL FUMARATE [Suspect]
     Indication: ACQUIRED IMMUNODEFICIENCY SYNDROME
  8. LAMIVUDINE [Suspect]
     Indication: ACQUIRED IMMUNODEFICIENCY SYNDROME
     Route: 048
     Dates: start: 20031201, end: 20060401
  9. FOSAMPRENAVIR [Suspect]
     Indication: DRUG USE FOR UNKNOWN INDICATION
     Dates: start: 20050401
  10. TRUVADA [Suspect]
     Indication: DRUG USE FOR UNKNOWN INDICATION
     Dates: start: 20060401

REACTIONS (10)
  - ABDOMINAL PAIN [None]
  - ARTERITIS [None]
  - COELIAC ARTERY STENOSIS [None]
  - HYPERTENSION [None]
  - ILIAC ARTERY STENOSIS [None]
  - INTERMITTENT CLAUDICATION [None]
  - MESENTERIC ARTERY STENOSIS [None]
  - MESENTERIC VASCULAR INSUFFICIENCY [None]
  - PERIPHERAL ARTERIAL OCCLUSIVE DISEASE [None]
  - SMALL INTESTINAL OBSTRUCTION [None]
